FAERS Safety Report 12984768 (Version 1)
Quarter: 2016Q4

REPORT INFORMATION
  Report Type: Spontaneous
  Country: DK (occurrence: DK)
  Receive Date: 20161129
  Receipt Date: 20161129
  Transmission Date: 20170207
  Serious: Yes (Other)
  Sender: FDA-Public Use
  Company Number: DK-TEVA-713049ACC

PATIENT
  Sex: Female

DRUGS (1)
  1. LEVONORGESTREL. [Suspect]
     Active Substance: LEVONORGESTREL
     Dosage: INTRAUTERINE DELIVERY SYSTEM
     Route: 015

REACTIONS (4)
  - Affect lability [Unknown]
  - Pain [Unknown]
  - Genital haemorrhage [Unknown]
  - Depression [Unknown]
